FAERS Safety Report 8000383-X (Version None)
Quarter: 2011Q4

REPORT INFORMATION
  Report Type: 
  Country: None (occurrence: None)
  Receive Date: 20111222
  Receipt Date: 20111213
  Transmission Date: 20120403
  Serious: Yes (Other)
  Sender: FDA-Public Use
  Company Number: US-BAYER-2011-064101

PATIENT
  Age: 30 Year
  Sex: Female
  Weight: 50 kg

DRUGS (3)
  1. DROSPIRENONE AND ETHINYL ESTRADIOL [Suspect]
     Indication: CONTRACEPTION
     Dosage: UNK
     Dates: start: 20081124, end: 20091030
  2. YASMIN [Suspect]
     Indication: CONTRACEPTION
     Dosage: UNK
     Dates: start: 20040125, end: 20081123
  3. YAZ [Suspect]
     Indication: CONTRACEPTION
     Dosage: UNK
     Dates: start: 20091124, end: 20100602

REACTIONS (14)
  - DYSPEPSIA [None]
  - CHEST PAIN [None]
  - GENERAL PHYSICAL HEALTH DETERIORATION [None]
  - ABDOMINAL PAIN UPPER [None]
  - CHOLECYSTITIS CHRONIC [None]
  - CHOLELITHIASIS [None]
  - INJURY [None]
  - EMOTIONAL DISTRESS [None]
  - NAUSEA [None]
  - BILIARY COLIC [None]
  - HYPERHIDROSIS [None]
  - ANXIETY [None]
  - PAIN [None]
  - INCISION SITE COMPLICATION [None]
